FAERS Safety Report 16642483 (Version 1)
Quarter: 2019Q3

REPORT INFORMATION
  Report Type: Spontaneous
  Country: US (occurrence: US)
  Receive Date: 20190729
  Receipt Date: 20190729
  Transmission Date: 20191004
  Serious: No
  Sender: FDA-Public Use
  Company Number: US-BAYER-2019-135788

PATIENT
  Age: 77 Year
  Sex: Female
  Weight: 79.82 kg

DRUGS (9)
  1. VITAMIN E [Suspect]
     Active Substance: .ALPHA.-TOCOPHEROL
     Dosage: UNK
     Dates: start: 20180328
  2. HYDROCHLOROTHIAZIDE. [Suspect]
     Active Substance: HYDROCHLOROTHIAZIDE
     Dosage: 1 DF, QD
     Route: 048
     Dates: start: 20170705
  3. BAYER LOW DOSE [Suspect]
     Active Substance: ASPIRIN
     Dosage: 1 DF, QD
     Route: 048
     Dates: start: 20170705
  4. LISINOPRIL. [Suspect]
     Active Substance: LISINOPRIL
     Dosage: 20 MG
     Dates: start: 20170719
  5. ALEVE [Suspect]
     Active Substance: NAPROXEN SODIUM
     Dosage: UNK
  6. NEBIVOLOL HCL [Suspect]
     Active Substance: NEBIVOLOL
     Dosage: 10 MG
     Route: 048
     Dates: start: 20170719
  7. GABAPENTIN. [Suspect]
     Active Substance: GABAPENTIN
     Dosage: 100 MG
     Dates: start: 20180928
  8. ATORVASTATIN [Suspect]
     Active Substance: ATORVASTATIN
     Dosage: 1 DF, QD
     Route: 048
     Dates: start: 20170705
  9. PRILOSEC [Suspect]
     Active Substance: OMEPRAZOLE MAGNESIUM
     Dosage: UNK
     Dates: start: 20180328

REACTIONS (8)
  - Dyspnoea [Unknown]
  - Peripheral swelling [Unknown]
  - Carotid arteriosclerosis [Unknown]
  - Gait disturbance [Unknown]
  - Weight increased [Unknown]
  - Arteriosclerosis coronary artery [Unknown]
  - Snoring [Unknown]
  - Somnolence [Unknown]

NARRATIVE: CASE EVENT DATE: 20170719
